FAERS Safety Report 10081817 (Version 1)
Quarter: 2014Q2

REPORT INFORMATION
  Report Type: Spontaneous
  Country: GB (occurrence: None)
  Receive Date: 20140414
  Receipt Date: 20140414
  Transmission Date: 20141212
  Serious: Yes (Other)
  Sender: FDA-Public Use
  Company Number: 2014100492

PATIENT
  Age: 35 Year
  Sex: Male

DRUGS (1)
  1. FRAGMIN (DALTEPARIN SODIUM) SOLUTION FOR INJECTION [Suspect]
     Indication: THROMBOSIS PROPHYLAXIS
     Dates: start: 20140223

REACTIONS (3)
  - Palpitations [None]
  - Feeling cold [None]
  - Anxiety [None]
